FAERS Safety Report 19865092 (Version 2)
Quarter: 2021Q3

REPORT INFORMATION
  Report Type: Spontaneous
  Country: JP (occurrence: JP)
  Receive Date: 20210921
  Receipt Date: 20210930
  Transmission Date: 20211014
  Serious: Yes (Life-Threatening, Hospitalization, Other)
  Sender: FDA-Public Use
  Company Number: JP-SA-2021SA309843

PATIENT
  Age: 79 Year
  Sex: Female

DRUGS (6)
  1. GLUCOSE [Suspect]
     Active Substance: DEXTROSE
     Dosage: UNK, CONT
  2. GLIMEPIRIDE. [Suspect]
     Active Substance: GLIMEPIRIDE
     Indication: TYPE 2 DIABETES MELLITUS
     Dosage: 4 MG, QD
     Route: 065
  3. INSULIN GLARGINE [Suspect]
     Active Substance: INSULIN GLARGINE
     Indication: TYPE 2 DIABETES MELLITUS
     Dosage: 8 U, QD
  4. MIGLITOL. [Suspect]
     Active Substance: MIGLITOL
     Indication: TYPE 2 DIABETES MELLITUS
     Dosage: 150 MG, QD
  5. SITAGLIPTIN [Suspect]
     Active Substance: SITAGLIPTIN
     Indication: TYPE 2 DIABETES MELLITUS
     Dosage: 50 MG, QD
  6. GLUCOSE [Suspect]
     Active Substance: DEXTROSE
     Indication: TYPE 2 DIABETES MELLITUS
     Dosage: INJECTION
     Route: 042

REACTIONS (6)
  - Reperfusion injury [Recovering/Resolving]
  - Hemiplegia [Recovering/Resolving]
  - Altered state of consciousness [Recovering/Resolving]
  - Hypoglycaemic encephalopathy [Recovering/Resolving]
  - Eye movement disorder [Recovering/Resolving]
  - Unresponsive to stimuli [Recovering/Resolving]
